FAERS Safety Report 13861305 (Version 1)
Quarter: 2017Q3

REPORT INFORMATION
  Report Type: Spontaneous
  Country: US (occurrence: US)
  Receive Date: 20170811
  Receipt Date: 20170811
  Transmission Date: 20171127
  Serious: Yes (Hospitalization)
  Sender: FDA-Public Use
  Company Number: US-MALLINCKRODT-T201703276

PATIENT
  Age: 56 Year
  Sex: Male
  Weight: 109 kg

DRUGS (6)
  1. FENTANYL TRANSDERMAL SYSTEM [Suspect]
     Active Substance: FENTANYL
     Indication: KNEE ARTHROPLASTY
     Dosage: TWO 100 MCG PATCHES
     Dates: start: 201706
  2. FENTANYL SANDOZ [Concomitant]
     Active Substance: FENTANYL
     Indication: SPINAL CORD INJURY
     Dosage: 50 MCG
     Route: 062
     Dates: start: 2016
  3. FENTANYL SANDOZ [Concomitant]
     Active Substance: FENTANYL
     Indication: KNEE ARTHROPLASTY
  4. FENTANYL TRANSDERMAL SYSTEM [Suspect]
     Active Substance: FENTANYL
     Indication: PAIN
     Dosage: TWO 100 MCG PATCHES
     Dates: start: 20170727
  5. FENTANYL SANDOZ [Concomitant]
     Active Substance: FENTANYL
     Indication: PAIN
  6. FENTANYL TRANSDERMAL SYSTEM [Suspect]
     Active Substance: FENTANYL
     Indication: SPINAL CORD INJURY
     Dosage: 100 MCG, TWO PATCHES EVERY 48 HOURS
     Route: 062

REACTIONS (5)
  - Intervertebral disc injury [Unknown]
  - Product quality issue [Unknown]
  - Drug effect incomplete [Unknown]
  - Skin hypertrophy [Unknown]
  - Fall [Unknown]

NARRATIVE: CASE EVENT DATE: 201609
